FAERS Safety Report 15236175 (Version 1)
Quarter: 2018Q3

REPORT INFORMATION
  Report Type: Spontaneous
  Country: US (occurrence: US)
  Receive Date: 20180709
  Receipt Date: 20180709
  Transmission Date: 20181010
  Serious: Yes (Hospitalization)
  Sender: FDA-Public Use
  Company Number: None

PATIENT
  Age: 78 Year
  Sex: Female

DRUGS (12)
  1. VITAMIN D [Suspect]
     Active Substance: CHOLECALCIFEROL
  2. MYRBETRIQ [Concomitant]
     Active Substance: MIRABEGRON
  3. NOVOLOG [Concomitant]
     Active Substance: INSULIN ASPART
  4. FENOFIBRATE. [Concomitant]
     Active Substance: FENOFIBRATE
  5. CALCIUM GLUC [Concomitant]
  6. BOSULIF [Suspect]
     Active Substance: BOSUTINIB MONOHYDRATE
     Indication: CHRONIC MYELOID LEUKAEMIA
     Route: 048
     Dates: start: 201608
  7. PREVACID [Concomitant]
     Active Substance: LANSOPRAZOLE
  8. DILTIAZEM. [Concomitant]
     Active Substance: DILTIAZEM
  9. ELIQUIS [Concomitant]
     Active Substance: APIXABAN
  10. TOUJEO SOLO [Concomitant]
  11. TRADJENTA [Concomitant]
     Active Substance: LINAGLIPTIN
  12. PRAVASTATIN. [Concomitant]
     Active Substance: PRAVASTATIN

REACTIONS (2)
  - Cardiac failure congestive [None]
  - Lung disorder [None]

NARRATIVE: CASE EVENT DATE: 20180614
